FAERS Safety Report 18177322 (Version 1)
Quarter: 2020Q3

REPORT INFORMATION
  Report Type: Spontaneous
  Country: DE (occurrence: DE)
  Receive Date: 20200821
  Receipt Date: 20200821
  Transmission Date: 20201103
  Serious: Yes (Hospitalization)
  Sender: FDA-Public Use
  Company Number: DE-TEVA-2020-DE-1815646

PATIENT
  Age: 85 Year
  Sex: Female

DRUGS (6)
  1. SPIRONOLACTON [Suspect]
     Active Substance: SPIRONOLACTONE
     Dosage: 50 MG, 01052020 1X
  2. ACETYLSALICYLSAURE [Concomitant]
     Active Substance: ASPIRIN
     Dosage: 100 MILLIGRAM DAILY;  0?1?0?0
  3. EBRANTIL [Concomitant]
     Active Substance: URAPIDIL
     Dosage: 90 MILLIGRAM DAILY; 1?1?1?0
  4. IRBESARTAN. [Suspect]
     Active Substance: IRBESARTAN
     Dosage: 450 MILLIGRAM DAILY; 1?1?1?0
  5. METFORMIN [Suspect]
     Active Substance: METFORMIN HYDROCHLORIDE
     Dosage: 1000 MG, 0.5?0.5?1?0
     Route: 065
  6. HCT [Concomitant]
     Active Substance: HYDROCHLOROTHIAZIDE
     Dosage: 12.5 MILLIGRAM DAILY; 1?0?0?0

REACTIONS (5)
  - Fatigue [Unknown]
  - Electrolyte imbalance [Unknown]
  - Muscle spasms [Unknown]
  - Vomiting [Unknown]
  - Nausea [Unknown]
